FAERS Safety Report 23662914 (Version 1)
Quarter: 2024Q1

REPORT INFORMATION
  Report Type: Spontaneous
  Country: CL (occurrence: None)
  Receive Date: 20240322
  Receipt Date: 20240322
  Transmission Date: 20240410
  Serious: Yes (Other)
  Sender: FDA-Public Use
  Company Number: CL-ROCHE-3529392

PATIENT
  Age: 68 Year
  Sex: Female
  Weight: 73 kg

DRUGS (2)
  1. AVASTIN [Suspect]
     Active Substance: BEVACIZUMAB
     Indication: Retinal artery occlusion
     Dosage: 1,25MG/0,5ML
     Route: 050
     Dates: start: 2022
  2. GLAUCOTENSIL [DORZOLAMIDE HYDROCHLORIDE;TIMOLOL MALEATE] [Concomitant]
     Dosage: PERMANENTLY, ONE DROP IN THE MORNING AND ANOTHER AT NIGHT, IN BOTH EYES. THE DOSE?WAS NOT REPORTED
     Route: 047
     Dates: start: 2020

REACTIONS (4)
  - Blindness transient [Recovered/Resolved]
  - Off label use [Unknown]
  - Off label use [Unknown]
  - Eye discharge [Not Recovered/Not Resolved]

NARRATIVE: CASE EVENT DATE: 20220101
